FAERS Safety Report 6490840-X (Version None)
Quarter: 2009Q4

REPORT INFORMATION
  Report Type: 
  Country: None (occurrence: None)
  Receive Date: 20091211
  Receipt Date: 20091203
  Transmission Date: 20100525
  Serious: Yes (Hospitalization, Other)
  Sender: FDA-Public Use
  Company Number: JP-B.I. PHARMACEUTICALS,INC./RIDGEFIELD-2007-BP-21669NB

PATIENT
  Sex: Male
  Weight: 77 kg

DRUGS (7)
  1. MICARDIS [Suspect]
     Indication: HYPERTENSION
     Dosage: 40 MG
     Route: 048
     Dates: start: 20060621
  2. URSO 250 [Concomitant]
     Indication: PROPHYLAXIS
     Dosage: 400 MG
     Route: 048
     Dates: start: 20070701
  3. ASPIRIN [Concomitant]
     Indication: PROPHYLAXIS
     Dosage: 100 MG
     Route: 048
  4. NORVASC [Concomitant]
     Indication: HYPERTENSION
     Dosage: 5 MG
     Route: 048
  5. ADALAT [Concomitant]
     Indication: HYPERTENSION
     Dosage: 20 MG
     Route: 048
  6. LASIX [Concomitant]
     Dosage: 30 MG
     Route: 048
  7. NOVORAPID [Concomitant]
     Dosage: 28 U
     Route: 023

REACTIONS (1)
  - HEPATIC NEOPLASM MALIGNANT [None]
